FAERS Safety Report 4323290-2 (Version None)
Quarter: 2004Q1

REPORT INFORMATION
  Report Type: 
  Country: None (occurrence: None)
  Receive Date: 20040323
  Receipt Date: 20031215
  Transmission Date: 20041129
  Serious: No
  Sender: FDA-Public Use
  Company Number: M03-341-188

PATIENT
  Age: 57 Year
  Sex: Female
  Weight: 62 kg

DRUGS (2)
  1. VELCADE [Suspect]
     Indication: MULTIPLE MYELOMA
     Dosage: 2.2 MG BIW: INTRAVENOUS BOLUS
     Route: 040
     Dates: start: 20031111, end: 20031113
  2. PROCRIT (ERYTHROPOIETIN) [Concomitant]

REACTIONS (1)
  - HYPERTENSION [None]
